FAERS Safety Report 4470882-6 (Version None)
Quarter: 2004Q4

REPORT INFORMATION
  Report Type: 
  Country: None (occurrence: None)
  Receive Date: 20041011
  Receipt Date: 20040913
  Transmission Date: 20050328
  Serious: Yes (Hospitalization)
  Sender: FDA-Public Use
  Company Number: ES-AMGEN-UK091140

PATIENT
  Sex: Female
  Weight: 79 kg

DRUGS (7)
  1. NEUPOGEN [Suspect]
     Indication: CHEMOTHERAPY
     Route: 058
     Dates: start: 20040831, end: 20040903
  2. FLUOROURACIL [Concomitant]
     Route: 042
     Dates: start: 20040826, end: 20040828
  3. ADRIAMYCIN PFS [Concomitant]
     Route: 042
     Dates: start: 20040826, end: 20040828
  4. MESNA [Concomitant]
     Route: 042
     Dates: start: 20040826, end: 20040826
  5. ALDACTONE [Concomitant]
  6. KONAKION [Concomitant]
  7. FUROSEMIDE [Concomitant]

REACTIONS (3)
  - ARTHRALGIA [None]
  - FEBRILE NEUTROPENIA [None]
  - MYALGIA [None]
